FAERS Safety Report 17753234 (Version 2)
Quarter: 2020Q2

REPORT INFORMATION
  Report Type: Spontaneous
  Country: BR (occurrence: BR)
  Receive Date: 20200506
  Receipt Date: 20200618
  Transmission Date: 20200714
  Serious: Yes (Other)
  Sender: FDA-Public Use
  Company Number: BR-UCBSA-2020018554

PATIENT
  Age: 37 Year
  Sex: Female

DRUGS (2)
  1. NORIPURUM [Concomitant]
     Active Substance: IRON POLYMALTOSE
     Indication: PRODUCT USED FOR UNKNOWN INDICATION
  2. LEVETIRACETAM. [Suspect]
     Active Substance: LEVETIRACETAM
     Indication: EPILEPSY
     Dosage: 1000 MG DAILY
     Dates: start: 2017

REACTIONS (5)
  - Maternal exposure during pregnancy [Unknown]
  - Haematoma [Unknown]
  - Procedural haemorrhage [Unknown]
  - Anaemia [Unknown]
  - Contusion [Unknown]
